FAERS Safety Report 8520763 (Version 2)
Quarter: 2012Q4

REPORT INFORMATION
  Report Type: 
  Country: US (occurrence: US)
  Receive Date: 20120418
  Receipt Date: 20121204
  Transmission Date: 20130627
  Serious: No
  Sender: FDA-Public Use
  Company Number: US-ASTRAZENECA-2011SE54069

PATIENT
  Age: 47 Year
  Sex: Male

DRUGS (2)
  1. NEXIUM [Suspect]
     Route: 048
  2. PRILOSEC [Suspect]
     Route: 048

REACTIONS (6)
  - Chest pain [Unknown]
  - Hiatus hernia [Unknown]
  - Dyspepsia [Unknown]
  - Dyspepsia [Unknown]
  - Drug ineffective [Unknown]
  - Drug dose omission [Unknown]
